FAERS Safety Report 4530356-0 (Version None)
Quarter: 2004Q4

REPORT INFORMATION
  Report Type: 
  Country: None (occurrence: None)
  Receive Date: 20041215
  Receipt Date: 20041206
  Transmission Date: 20050328
  Serious: Yes (Hospitalization)
  Sender: FDA-Public Use
  Company Number: GXKR2004GB00475

PATIENT
  Age: 83 Year
  Sex: Female

DRUGS (4)
  1. ATENOLOL (NGX) (ATENOLOL) [Suspect]
     Indication: MYOCARDIAL INFARCTION
     Dosage: 50 MG, QD, ORAL
     Route: 048
     Dates: start: 20031201, end: 20041125
  2. ASPIRIN [Concomitant]
  3. ATORVASTATIN (ATORVASTATIN) [Concomitant]
  4. DOXAZOSIN MESYLATE [Concomitant]

REACTIONS (5)
  - FALL [None]
  - FRACTURE [None]
  - HAEMATOMA [None]
  - HALLUCINATION [None]
  - NIGHTMARE [None]
